FAERS Safety Report 4664522-0 (Version None)
Quarter: 2005Q2

REPORT INFORMATION
  Report Type: 
  Country: None (occurrence: None)
  Receive Date: 20050518
  Receipt Date: 20050504
  Transmission Date: 20051028
  Serious: Yes (Hospitalization)
  Sender: FDA-Public Use
  Company Number: PHBS2005FR06292

PATIENT
  Age: 95 Year
  Sex: Female

DRUGS (6)
  1. DICLOFENAC SODIUM [Suspect]
     Dosage: 50 MG, TID
     Route: 048
     Dates: start: 20050325, end: 20050331
  2. LOPERAMIDE HCL [Concomitant]
     Dosage: 2 MG, QD
     Route: 048
     Dates: start: 20050325, end: 20050331
  3. DOLIPRANE [Concomitant]
     Dosage: 1 G, QID
     Route: 048
     Dates: start: 20050325
  4. TEMESTA [Concomitant]
     Dosage: 1 DF, QD
     Route: 048
  5. COZAAR [Concomitant]
     Indication: HYPERTENSION
     Dosage: 1 DF, QD
     Route: 048
     Dates: end: 20050331
  6. EUPANTOL [Suspect]
     Dosage: 20 MG, QD
     Route: 048
     Dates: start: 20050325, end: 20050331

REACTIONS (8)
  - ANAEMIA [None]
  - COLITIS [None]
  - DIARRHOEA [None]
  - DIVERTICULUM INTESTINAL [None]
  - HAEMATOCHEZIA [None]
  - HAEMOGLOBIN DECREASED [None]
  - HAEMORRHAGE [None]
  - HAEMORRHOIDS [None]
